FAERS Safety Report 10607611 (Version 2)
Quarter: 2014Q4

REPORT INFORMATION
  Report Type: Report from Study
  Country: NL (occurrence: NL)
  Receive Date: 20141125
  Receipt Date: 20141125
  Transmission Date: 20150529
  Serious: Yes (Death)
  Sender: FDA-Public Use
  Company Number: NL-CELGENE-NLD-2014104787

PATIENT
  Age: 84 Year
  Sex: Female
  Weight: 68 kg

DRUGS (3)
  1. PRBC [Concomitant]
     Indication: PRODUCT USED FOR UNKNOWN INDICATION
     Route: 065
     Dates: start: 20140802, end: 20140828
  2. PRIMPERAN [Concomitant]
     Active Substance: METOCLOPRAMIDE HYDROCHLORIDE
     Indication: PRODUCT USED FOR UNKNOWN INDICATION
     Route: 065
     Dates: start: 20140825
  3. AZACITIDINE. [Suspect]
     Active Substance: AZACITIDINE
     Dosage: 114 MILLIGRAM
     Route: 058
     Dates: start: 20140825, end: 20140902

REACTIONS (2)
  - Ischaemia [Fatal]
  - Urosepsis [Fatal]

NARRATIVE: CASE EVENT DATE: 20141010
